FAERS Safety Report 5592499-2 (Version None)
Quarter: 2008Q1

REPORT INFORMATION
  Report Type: 
  Country: None (occurrence: None)
  Receive Date: 20080115
  Receipt Date: 20080109
  Transmission Date: 20080703
  Serious: Yes (Death)
  Sender: FDA-Public Use
  Company Number: US-PFIZER INC-2008002773

PATIENT
  Age: 60 Year
  Sex: Male

DRUGS (4)
  1. GLIPIZIDE [Suspect]
  2. LITHIUM CARBONATE [Suspect]
  3. VALPROIC ACID [Suspect]
  4. ALCOHOL [Suspect]

REACTIONS (1)
  - COMPLETED SUICIDE [None]
